FAERS Safety Report 5231996-6 (Version None)
Quarter: 2007Q1

REPORT INFORMATION
  Report Type: 
  Country: None (occurrence: None)
  Receive Date: 20070202
  Receipt Date: 20070124
  Transmission Date: 20070707
  Serious: Yes (Other)
  Sender: FDA-Public Use
  Company Number: 230619K07USA

PATIENT
  Age: 47 Year
  Sex: Female

DRUGS (2)
  1. REBIF [Suspect]
     Indication: MULTIPLE SCLEROSIS
     Dosage: 44 MCG
     Dates: start: 20061201
  2. ASPIRIN [Concomitant]

REACTIONS (4)
  - CARDIAC DISORDER [None]
  - PRURITUS [None]
  - RASH [None]
  - URTICARIA [None]
